FAERS Safety Report 4720759-3 (Version None)
Quarter: 2005Q3

REPORT INFORMATION
  Report Type: 
  Country: None (occurrence: None)
  Receive Date: 20050719
  Receipt Date: 20050630
  Transmission Date: 20060218
  Serious: Yes (Death)
  Sender: FDA-Public Use
  Company Number: US_0502113422

PATIENT
  Age: 22 Year
  Sex: Female
  Weight: 73 kg

DRUGS (1)
  1. ZYPREXA [Suspect]
     Indication: ANXIETY
     Dates: start: 20020701

REACTIONS (1)
  - DIABETES MELLITUS [None]
